FAERS Safety Report 18957927 (Version 5)
Quarter: 2022Q1

REPORT INFORMATION
  Report Type: Spontaneous
  Country: US (occurrence: US)
  Receive Date: 20210302
  Receipt Date: 20220113
  Transmission Date: 20220423
  Serious: No
  Sender: FDA-Public Use
  Company Number: US-PFIZER INC-2021195159

PATIENT
  Age: 17 Year
  Sex: Female
  Weight: 45.36 kg

DRUGS (4)
  1. GENOTROPIN [Suspect]
     Active Substance: SOMATROPIN
     Indication: Turner^s syndrome
     Dosage: 2 MG, DAILY
  2. GENOTROPIN [Suspect]
     Active Substance: SOMATROPIN
     Dosage: 2.4 MG, DAILY
  3. ESTRADIOL [Concomitant]
     Active Substance: ESTRADIOL
     Indication: Turner^s syndrome
     Dosage: 25 MG, ONCE DAILY
     Route: 048
     Dates: start: 2020
  4. LEVOTHYROXINE [Concomitant]
     Active Substance: LEVOTHYROXINE
     Indication: Hypothyroidism
     Dosage: 25 MG, ONCE DAILY
     Route: 048

REACTIONS (3)
  - Device use issue [Unknown]
  - Device malfunction [Unknown]
  - Device leakage [Unknown]
